FAERS Safety Report 15778810 (Version 4)
Quarter: 2020Q4

REPORT INFORMATION
  Report Type: Report from Study
  Country: US (occurrence: US)
  Receive Date: 20190101
  Receipt Date: 20201116
  Transmission Date: 20210113
  Serious: Yes (Death, Hospitalization)
  Sender: FDA-Public Use
  Company Number: US-ROCHE-2234345

PATIENT
  Age: 63 Year
  Sex: Female
  Weight: 84.1 kg

DRUGS (15)
  1. ATEZOLIZUMAB. [Suspect]
     Active Substance: ATEZOLIZUMAB
     Indication: OVARIAN CANCER
     Dosage: ON 30/NOV/2018, SHE RECEIVED HIS MOST RECENT DOSE OF ATEZOLIZUMAB PRIOR TO THE SAE.
     Route: 042
     Dates: start: 20181115
  2. PREGABALIN. [Concomitant]
     Active Substance: PREGABALIN
  3. PANTOPRAZOLE [Concomitant]
     Active Substance: PANTOPRAZOLE
  4. LACTOBACILLUS RHAMNOSUS [Concomitant]
     Active Substance: LACTOBACILLUS RHAMNOSUS
  5. POLYETHYLENE GLYCOL [Concomitant]
     Active Substance: POLYETHYLENE GLYCOLS
  6. BEVACIZUMAB. [Suspect]
     Active Substance: BEVACIZUMAB
     Indication: OVARIAN CANCER
     Dosage: ON 30/NOV/2018, SHE RECEIVED HIS MOST RECENT DOSE OF BEVACIZUMAB PRIOR TO THE SAE.
     Route: 042
     Dates: start: 20181115
  7. DOXIL [Suspect]
     Active Substance: DOXORUBICIN HYDROCHLORIDE
     Indication: OVARIAN CANCER
     Dosage: ON 15/NOV/2018, SHE RECEIVED HIS MOST RECENT DOSE OF PEGYLATED LIPOSOMAL DOXORUBICIN PRIOR TO THE SA
     Route: 042
     Dates: start: 20181115
  8. ATORVASTATIN [Concomitant]
     Active Substance: ATORVASTATIN
  9. DOCUSATE [Concomitant]
     Active Substance: DOCUSATE
  10. TRAMADOL. [Concomitant]
     Active Substance: TRAMADOL
  11. ONDANSETRON [Concomitant]
     Active Substance: ONDANSETRON
  12. ESCITALOPRAM [Concomitant]
     Active Substance: ESCITALOPRAM OXALATE
  13. FUROSEMIDE. [Concomitant]
     Active Substance: FUROSEMIDE
  14. PROMETHAZINE [Concomitant]
     Active Substance: PROMETHAZINE HYDROCHLORIDE
  15. APIXABAN [Concomitant]
     Active Substance: APIXABAN

REACTIONS (4)
  - Dehydration [Unknown]
  - Respiratory failure [Fatal]
  - Pulmonary oedema [Unknown]
  - Cardiac failure congestive [Fatal]

NARRATIVE: CASE EVENT DATE: 20181216
